FAERS Safety Report 7593487-7 (Version None)
Quarter: 2011Q3

REPORT INFORMATION
  Report Type: 
  Country: None (occurrence: None)
  Receive Date: 20110706
  Receipt Date: 20110705
  Transmission Date: 20111222
  Serious: Yes (Hospitalization, Other)
  Sender: FDA-Public Use
  Company Number: US-ROXANE LABORATORIES, INC.-2011-RO-00573RO

PATIENT
  Sex: Male

DRUGS (16)
  1. DEXAMETHASONE [Suspect]
     Indication: MULTIPLE MYELOMA
     Dosage: 40 MG
     Route: 048
     Dates: start: 20110401
  2. CALCIUM AND VITAMIN D [Concomitant]
  3. SENOKOT [Concomitant]
     Dates: start: 20100717
  4. CLONOPIN [Concomitant]
  5. DEXAMETHASONE [Suspect]
     Route: 048
     Dates: start: 20110401
  6. BMS833923 [Suspect]
     Indication: MULTIPLE MYELOMA
     Dosage: 90 MG
     Route: 048
     Dates: start: 20110520
  7. CENTRUM SILVER [Concomitant]
     Dates: start: 20070831
  8. ASPIRIN [Concomitant]
     Indication: THROMBOSIS PROPHYLAXIS
     Dates: start: 20100827
  9. LENALIDOMIDE [Suspect]
     Route: 048
     Dates: start: 20110401
  10. CALCIUM CARBONATE [Concomitant]
     Dates: start: 20070831
  11. MAGNESIUM [Concomitant]
     Dates: start: 20100512
  12. GABAPENTIN [Concomitant]
     Dates: start: 20100415
  13. LENALIDOMIDE [Suspect]
     Indication: MULTIPLE MYELOMA
     Dosage: 10 MG
     Route: 048
     Dates: start: 20110401
  14. CLONAZEPAM [Concomitant]
     Dates: start: 20100916
  15. NEURONTIN [Concomitant]
  16. ATIVAN [Concomitant]
     Dates: start: 20100701

REACTIONS (5)
  - NEUTROPENIA [None]
  - SINUSITIS [None]
  - PYREXIA [None]
  - OTITIS MEDIA [None]
  - STREPTOCOCCAL BACTERAEMIA [None]
